FAERS Safety Report 25571129 (Version 1)
Quarter: 2025Q3

REPORT INFORMATION
  Report Type: Report from Study
  Country: CA (occurrence: CA)
  Receive Date: 20250717
  Receipt Date: 20250717
  Transmission Date: 20251021
  Serious: Yes (Other)
  Sender: JOHNSON AND JOHNSON
  Company Number: CA-JNJFOC-20250713373

PATIENT
  Age: 20 Year
  Sex: Female
  Weight: 64.9 kg

DRUGS (2)
  1. REMICADE [Suspect]
     Active Substance: INFLIXIMAB
     Indication: Ankylosing spondylitis
     Route: 041
  2. REMICADE [Suspect]
     Active Substance: INFLIXIMAB
     Dosage: 4 NUMBER OF UNITS INVOLVED IN THIS COMPLAINT
     Route: 041

REACTIONS (4)
  - Arthralgia [Not Recovered/Not Resolved]
  - Incorrect drug administration rate [Unknown]
  - Joint range of motion decreased [Not Recovered/Not Resolved]
  - Off label use [Unknown]

NARRATIVE: CASE EVENT DATE: 20250610
